FAERS Safety Report 7913777-5 (Version None)
Quarter: 2011Q4

REPORT INFORMATION
  Report Type: 
  Country: None (occurrence: None)
  Receive Date: 20111115
  Receipt Date: 20111114
  Transmission Date: 20120403
  Serious: Yes (Other)
  Sender: FDA-Public Use
  Company Number: US-JNJFOC-20111013188

PATIENT
  Age: 35 Year
  Sex: Female

DRUGS (10)
  1. DOXORUBICIN HCL [Suspect]
     Route: 042
  2. CYCLOPHOSPHAMIDE [Suspect]
     Route: 065
  3. PACLITAXEL [Suspect]
     Indication: BREAST CANCER
     Route: 065
  4. NEUPOGEN [Concomitant]
     Indication: PRODUCT USED FOR UNKNOWN INDICATION
     Route: 065
  5. DOXORUBICIN HCL [Suspect]
     Indication: BREAST CANCER
     Route: 042
  6. DOXORUBICIN HCL [Suspect]
     Route: 042
  7. CYCLOPHOSPHAMIDE [Suspect]
     Indication: BREAST CANCER
     Route: 065
  8. CYCLOPHOSPHAMIDE [Suspect]
     Route: 065
  9. DOXORUBICIN HCL [Suspect]
     Route: 042
  10. CYCLOPHOSPHAMIDE [Suspect]
     Route: 065

REACTIONS (3)
  - PREMATURE LABOUR [None]
  - BREAST CANCER [None]
  - MATERNAL EXPOSURE DURING PREGNANCY [None]
